FAERS Safety Report 7285748-6 (Version None)
Quarter: 2011Q1

REPORT INFORMATION
  Report Type: 
  Country: None (occurrence: None)
  Receive Date: 20110210
  Receipt Date: 20110128
  Transmission Date: 20110831
  Serious: No
  Sender: FDA-Public Use
  Company Number: US-PFIZER INC-US-WYE-H18490310

PATIENT
  Sex: Male

DRUGS (1)
  1. PROTONIX [Suspect]
     Dosage: UNKNOWN
     Route: 065

REACTIONS (1)
  - NO ADVERSE EVENT [None]
